FAERS Safety Report 8924476 (Version 2)
Quarter: 2013Q1

REPORT INFORMATION
  Report Type: Spontaneous
  Country: US (occurrence: US)
  Receive Date: 20121126
  Receipt Date: 20130225
  Transmission Date: 20140127
  Serious: Yes (Hospitalization, Disabling, Other)
  Sender: FDA-Public Use
  Company Number: US-MERCK-1211USA008051

PATIENT
  Age: 59 None
  Sex: Female

DRUGS (9)
  1. PEGINTRON [Suspect]
     Dosage: 150 MICROGRAM, QW
     Route: 058
     Dates: start: 201204, end: 2012
  2. PEGINTRON [Suspect]
     Dosage: 150 MICROGRAM, QW
     Route: 058
     Dates: start: 2012
  3. TELAPREVIR [Suspect]
  4. RIBASPHERE [Suspect]
  5. METOPROLOL [Concomitant]
  6. HYDROCHLOROTHIAZIDE (+) LISINOPRIL [Concomitant]
  7. LEVOTHYROXINE SODIUM [Concomitant]
  8. ALBUTEROL [Concomitant]
  9. OMEGA-3 MARINE TRIGLYCERIDES [Concomitant]

REACTIONS (7)
  - Mood altered [Recovered/Resolved]
  - Back pain [Recovered/Resolved]
  - Hypotension [Unknown]
  - Chest pain [Recovered/Resolved]
  - Dyspnoea [Recovered/Resolved]
  - Fatigue [Recovered/Resolved]
  - Hypotension [Recovered/Resolved]
